FAERS Safety Report 6695295-8 (Version None)
Quarter: 2010Q2

REPORT INFORMATION
  Report Type: 
  Country: None (occurrence: None)
  Receive Date: 20100423
  Receipt Date: 20100415
  Transmission Date: 20101027
  Serious: Yes (Death, Hospitalization)
  Sender: FDA-Public Use
  Company Number: IT-MERCK-1004USA02542

PATIENT
  Age: 60 Year
  Sex: Female

DRUGS (9)
  1. DECADRON [Suspect]
     Indication: LIGHT CHAIN DISEASE
     Route: 048
     Dates: start: 20080101
  2. LENALIDOMIDE [Suspect]
     Indication: LIGHT CHAIN DISEASE
     Route: 065
     Dates: start: 20080101
  3. ASPIRIN [Concomitant]
     Indication: THROMBOSIS
     Route: 065
     Dates: start: 20080101
  4. AMOXICILLIN [Concomitant]
     Indication: HELICOBACTER GASTRITIS
     Route: 065
     Dates: start: 20080101
  5. CLARITHROMYCIN [Concomitant]
     Indication: HELICOBACTER GASTRITIS
     Route: 065
     Dates: start: 20080101
  6. SALINA [Concomitant]
     Indication: NEPHROPATHY
     Route: 065
     Dates: start: 20080101
  7. DEXTROSE [Concomitant]
     Indication: NEPHROPATHY
     Route: 065
     Dates: start: 20080101
  8. BICARBONATE [Concomitant]
     Indication: NEPHROPATHY
     Route: 042
     Dates: start: 20080101
  9. ZOLEDRONATE DISODIUM [Suspect]
     Route: 042
     Dates: start: 20080101

REACTIONS (7)
  - ACUTE RESPIRATORY FAILURE [None]
  - CALCIFICATION METASTATIC [None]
  - HYPERCALCAEMIA [None]
  - HYPOCALCAEMIA [None]
  - MARROW HYPERPLASIA [None]
  - MULTI-ORGAN FAILURE [None]
  - PULMONARY CALCIFICATION [None]
